FAERS Safety Report 4442163-8 (Version None)
Quarter: 2004Q3

REPORT INFORMATION
  Report Type: 
  Country: None (occurrence: None)
  Receive Date: 20040903
  Receipt Date: 20040722
  Transmission Date: 20050211
  Serious: Yes (Other)
  Sender: FDA-Public Use
  Company Number: 2004UW15556

PATIENT
  Sex: Male

DRUGS (11)
  1. CRESTOR [Suspect]
     Dosage: 20 MG PO
     Route: 048
     Dates: start: 20031215
  2. CRESTOR [Suspect]
     Dosage: 10 MG PO
     Route: 048
     Dates: end: 20031215
  3. TRICOR [Concomitant]
  4. COREG [Concomitant]
  5. DIGOXIN [Concomitant]
  6. ALDACTONE [Concomitant]
  7. CELEBREX [Concomitant]
  8. HUMULIN [Concomitant]
  9. AVANDIA [Concomitant]
  10. LASIX [Concomitant]
  11. ZAROXOLYN [Concomitant]

REACTIONS (2)
  - BLOOD CHOLESTEROL INCREASED [None]
  - BLOOD TRIGLYCERIDES INCREASED [None]
